FAERS Safety Report 6432498-1 (Version None)
Quarter: 2009Q4

REPORT INFORMATION
  Report Type: 
  Country: None (occurrence: None)
  Receive Date: 20091109
  Receipt Date: 20091104
  Transmission Date: 20100525
  Serious: Yes (Other)
  Sender: FDA-Public Use
  Company Number: JP-BAYER-200913779BYL

PATIENT
  Age: 67 Year
  Sex: Male
  Weight: 51 kg

DRUGS (8)
  1. NEXAVAR [Suspect]
     Indication: RENAL CELL CARCINOMA
     Dosage: TOTAL DAILY DOSE: 800 MG  UNIT DOSE: 200 MG
     Route: 048
     Dates: start: 20090907, end: 20090924
  2. NEXAVAR [Suspect]
     Dosage: UNIT DOSE: 200 MG
     Route: 048
     Dates: start: 20090924, end: 20091001
  3. WARFARIN SODIUM [Concomitant]
     Dosage: TOTAL DAILY DOSE: 2 MG
     Route: 048
  4. SEIBULE [Concomitant]
     Dosage: TOTAL DAILY DOSE: 225 MG  UNIT DOSE: 75 MG
     Route: 048
  5. AMARYL [Concomitant]
     Dosage: TOTAL DAILY DOSE: 2 MG  UNIT DOSE: 1 MG
     Route: 048
  6. CONIEL [Concomitant]
     Dosage: TOTAL DAILY DOSE: 4 MG  UNIT DOSE: 4 MG
     Route: 048
  7. ARTIST [Concomitant]
     Dosage: TOTAL DAILY DOSE: 10 MG  UNIT DOSE: 10 MG
     Route: 048
  8. MUCOSTA [Concomitant]
     Indication: PROPHYLAXIS AGAINST GASTROINTESTINAL ULCER
     Dosage: TOTAL DAILY DOSE: 2 DF
     Route: 048
     Dates: start: 20091001, end: 20091028

REACTIONS (2)
  - BLOOD AMYLASE INCREASED [None]
  - STEVENS-JOHNSON SYNDROME [None]
